FAERS Safety Report 12356341 (Version 2)
Quarter: 2016Q2

REPORT INFORMATION
  Report Type: Spontaneous
  Country: JP (occurrence: JP)
  Receive Date: 20160511
  Receipt Date: 20160523
  Transmission Date: 20160815
  Serious: Yes (Life-Threatening, Hospitalization)
  Sender: FDA-Public Use
  Company Number: JP-PFIZER INC-2016209557

PATIENT
  Age: 79 Year
  Sex: Female
  Weight: 43.5 kg

DRUGS (5)
  1. TAKECAB [Suspect]
     Active Substance: VONOPRAZAN FUMURATE
     Dosage: 20 MG, 1X/DAY
     Route: 048
     Dates: start: 20160404, end: 20160410
  2. TAKECAB [Suspect]
     Active Substance: VONOPRAZAN FUMURATE
     Dosage: UNK
     Route: 048
     Dates: start: 20160415
  3. TENELIA [Suspect]
     Active Substance: TENELIGLIPTIN
     Dosage: UNK
     Route: 048
     Dates: start: 20160415
  4. TENELIA [Suspect]
     Active Substance: TENELIGLIPTIN
     Dosage: 20 MG, 1X/DAY
     Route: 048
     Dates: start: 20160407, end: 20160410
  5. CEFTRIAXONE PFIZER [Suspect]
     Active Substance: CEFTRIAXONE
     Indication: ENTEROCOLITIS BACTERIAL
     Dosage: 1 G, 1X/DAY
     Route: 041
     Dates: start: 20160401, end: 20160411

REACTIONS (1)
  - Altered state of consciousness [Recovered/Resolved]

NARRATIVE: CASE EVENT DATE: 20160410
